FAERS Safety Report 11050387 (Version 2)
Quarter: 2015Q2

REPORT INFORMATION
  Report Type: Report from Study
  Country: US (occurrence: US)
  Receive Date: 20150421
  Receipt Date: 20150603
  Transmission Date: 20150821
  Serious: Yes (Hospitalization)
  Sender: FDA-Public Use
  Company Number: US-ALEXION PHARMACEUTICALS INC.-A201501338

PATIENT

DRUGS (2)
  1. DEPAKOTE [Suspect]
     Active Substance: DIVALPROEX SODIUM
     Indication: PRODUCT USED FOR UNKNOWN INDICATION
     Route: 065
  2. SOLIRIS [Suspect]
     Active Substance: ECULIZUMAB
     Indication: HAEMOLYTIC URAEMIC SYNDROME
     Dosage: UNK
     Route: 042

REACTIONS (3)
  - Painful defaecation [Unknown]
  - White blood cell count decreased [Not Recovered/Not Resolved]
  - Diarrhoea [Unknown]

NARRATIVE: CASE EVENT DATE: 20150514
